FAERS Safety Report 8209658-2 (Version None)
Quarter: 2012Q1

REPORT INFORMATION
  Report Type: 
  Country: None (occurrence: None)
  Receive Date: 20120314
  Receipt Date: 20120308
  Transmission Date: 20120608
  Serious: Yes (Disabling, Other)
  Sender: FDA-Public Use
  Company Number: US-PFIZER INC-2012062686

PATIENT
  Sex: Female
  Weight: 54.42 kg

DRUGS (2)
  1. EFFEXOR [Suspect]
     Indication: DEPRESSION
     Dosage: UNK, 1X/DAY
     Route: 048
     Dates: start: 19970101, end: 19990101
  2. IMITREX [Interacting]
     Indication: MIGRAINE
     Dosage: UNK
     Dates: start: 19990101, end: 19990101

REACTIONS (6)
  - WITHDRAWAL SYNDROME [None]
  - UVEITIS [None]
  - NAUSEA [None]
  - MALAISE [None]
  - DRUG INTERACTION [None]
  - MIGRAINE [None]
